FAERS Safety Report 18117265 (Version 1)
Quarter: 2020Q3

REPORT INFORMATION
  Report Type: Spontaneous
  Country: US (occurrence: US)
  Receive Date: 20200805
  Receipt Date: 20200805
  Transmission Date: 20201103
  Serious: Yes (Death)
  Sender: FDA-Public Use
  Company Number: None

PATIENT
  Age: 60 Year
  Sex: Female

DRUGS (1)
  1. GLATIRAMER [Suspect]
     Active Substance: GLATIRAMER
     Indication: PRODUCT USED FOR UNKNOWN INDICATION
     Dosage: ??          OTHER FREQUENCY:3 TIMES A WEEK;?
     Route: 058
     Dates: start: 20190218, end: 20200728

REACTIONS (1)
  - Death [None]

NARRATIVE: CASE EVENT DATE: 20200728
